FAERS Safety Report 6368913-1 (Version None)
Quarter: 2009Q3

REPORT INFORMATION
  Report Type: 
  Country: None (occurrence: None)
  Receive Date: 20090922
  Receipt Date: 20090922
  Transmission Date: 20100115
  Serious: Yes (Death, Hospitalization)
  Sender: FDA-Public Use
  Company Number: US-B.I. PHARMACEUTICALS,INC./RIDGEFIELD-2008-BP-01968BP

PATIENT
  Sex: Female

DRUGS (14)
  1. COMBIVENT [Suspect]
     Indication: DYSPNOEA
     Route: 055
     Dates: start: 20070412, end: 20070525
  2. SU-011, 248 (SUNITINIE MALATE) [Suspect]
     Indication: METASTATIC RENAL CELL CARCINOMA
     Route: 048
     Dates: start: 20061221, end: 20090509
  3. SU-011, 248 (SUNITINIE MALATE) [Suspect]
     Dosage: 37.5 MG
     Route: 048
     Dates: start: 20061201, end: 20061214
  4. GEMCITABINE [Suspect]
     Indication: METASTATIC RENAL CELL CARCINOMA
     Route: 042
     Dates: start: 20061130, end: 20070503
  5. AVALIDE [Concomitant]
     Indication: HYPERTENSION
     Route: 048
     Dates: start: 19970101
  6. TOPROL-XL [Concomitant]
     Indication: HYPERTENSION
     Dosage: 100 MG
     Route: 048
     Dates: start: 19970101
  7. ROBITUSSIN WITH CODEINE [Concomitant]
     Indication: COUGH
     Route: 048
     Dates: start: 20061012
  8. AMLODIPINE [Concomitant]
     Indication: HYPERTENSION
     Route: 048
     Dates: start: 20070118
  9. CELEXA [Concomitant]
     Indication: DEPRESSION
     Route: 048
     Dates: start: 20070412
  10. COMPAZINE [Concomitant]
     Indication: NAUSEA
     Route: 048
     Dates: start: 20070308
  11. HYDROCHLOROTHIAZIDE [Concomitant]
     Indication: HYPERTENSION
     Route: 048
     Dates: start: 20070118
  12. RITALIN [Concomitant]
     Indication: WEIGHT DECREASED
     Route: 048
     Dates: start: 20070301, end: 20070428
  13. NEULASTA [Concomitant]
     Route: 058
     Dates: start: 20070504, end: 20070504
  14. VALIUM [Concomitant]
     Indication: DYSPNOEA
     Dosage: 20 MG
     Route: 048
     Dates: start: 20061121

REACTIONS (3)
  - ATRIAL FIBRILLATION [None]
  - DISEASE PROGRESSION [None]
  - METASTATIC RENAL CELL CARCINOMA [None]
